FAERS Safety Report 7620070-7 (Version None)
Quarter: 2011Q3

REPORT INFORMATION
  Report Type: 
  Country: None (occurrence: None)
  Receive Date: 20110719
  Receipt Date: 20110708
  Transmission Date: 20111222
  Serious: Yes (Life-Threatening)
  Sender: FDA-Public Use
  Company Number: HU-JNJFOC-20101005529

PATIENT
  Sex: Male

DRUGS (9)
  1. ABIRATERONE ACETATE [Suspect]
     Route: 048
  2. PREDNISOLONE [Suspect]
     Indication: PROSTATE CANCER METASTATIC
     Route: 048
  3. GOSERELIN ACETATE [Concomitant]
     Indication: PROSTATE CANCER METASTATIC
     Route: 030
     Dates: start: 20081016
  4. GOSERELIN ACETATE [Concomitant]
     Indication: HORMONE THERAPY
     Route: 030
     Dates: start: 20081016
  5. ABIRATERONE ACETATE [Suspect]
     Indication: PROSTATE CANCER METASTATIC
     Route: 048
     Dates: start: 20081016, end: 20101021
  6. GOSERELIN ACETATE [Concomitant]
     Route: 030
     Dates: start: 20060106
  7. GOSERELIN ACETATE [Concomitant]
     Route: 030
     Dates: start: 20060106
  8. AMLODIPINE [Concomitant]
     Indication: HYPERTONIA
     Route: 048
     Dates: start: 20080703
  9. METAMIZOLUM [Concomitant]
     Indication: CANCER PAIN
     Route: 048
     Dates: start: 20080810

REACTIONS (1)
  - HYPOPHOSPHATAEMIA [None]
